FAERS Safety Report 8596508-8 (Version None)
Quarter: 2012Q3

REPORT INFORMATION
  Report Type: 
  Country: None (occurrence: None)
  Receive Date: 20120806
  Receipt Date: 20120806
  Transmission Date: 20120928
  Serious: No
  Sender: FDA-Public Use
  Company Number: None

PATIENT
  Age: 54 Year
  Sex: Female
  Weight: 56.6996 kg

DRUGS (1)
  1. ATELVIA [Suspect]
     Indication: OSTEOPENIA
     Dosage: 1 TAB WEEKLY PO
     Route: 048
     Dates: start: 20120215, end: 20120729

REACTIONS (3)
  - SCLERITIS [None]
  - EYE PAIN [None]
  - EYE INFLAMMATION [None]
